FAERS Safety Report 10390688 (Version 1)
Quarter: 2014Q3

REPORT INFORMATION
  Report Type: Spontaneous
  Country: US (occurrence: US)
  Receive Date: 20140818
  Receipt Date: 20140818
  Transmission Date: 20150326
  Serious: Yes (Other)
  Sender: FDA-Public Use
  Company Number: US-SA-2014SA066537

PATIENT
  Age: 9 Year
  Sex: Male

DRUGS (1)
  1. AUVI-Q [Suspect]
     Active Substance: EPINEPHRINE
     Indication: PRODUCT USED FOR UNKNOWN INDICATION
     Dosage: START + END: 1.5 WEEK AGO
     Route: 065
     Dates: start: 201405, end: 201405

REACTIONS (1)
  - Hypersensitivity [Recovered/Resolved]
